FAERS Safety Report 12600183 (Version 1)
Quarter: 2016Q3

REPORT INFORMATION
  Report Type: Spontaneous
  Country: CN (occurrence: CN)
  Receive Date: 20160727
  Receipt Date: 20160727
  Transmission Date: 20161109
  Serious: Yes (Other)
  Sender: FDA-Public Use
  Company Number: PHHY2016CN100344

PATIENT
  Age: 44 Year
  Sex: Female

DRUGS (9)
  1. EVEROLIMUS [Suspect]
     Active Substance: EVEROLIMUS
     Dosage: 5 MG, QD
     Route: 065
     Dates: start: 20130101, end: 20130125
  2. EVEROLIMUS [Suspect]
     Active Substance: EVEROLIMUS
     Dosage: 10 MG, QD
     Route: 065
     Dates: start: 20130310, end: 20130624
  3. EVEROLIMUS [Suspect]
     Active Substance: EVEROLIMUS
     Dosage: 5 MG, QD
     Route: 065
     Dates: start: 20121013, end: 20121106
  4. EVEROLIMUS [Suspect]
     Active Substance: EVEROLIMUS
     Dosage: 7.5 MG, QD
     Route: 065
     Dates: start: 20130217, end: 20130310
  5. EVEROLIMUS [Suspect]
     Active Substance: EVEROLIMUS
     Dosage: 7.5 MG, QD
     Route: 065
     Dates: start: 20121107, end: 20121231
  6. EVEROLIMUS [Suspect]
     Active Substance: EVEROLIMUS
     Dosage: 7.5 MG, QD
     Route: 065
     Dates: start: 20130126, end: 20130208
  7. FULVESTRANT [Concomitant]
     Active Substance: FULVESTRANT
     Indication: INVASIVE DUCTAL BREAST CARCINOMA
     Dosage: 500 MG, ONCE/28 DAYS
     Route: 065
  8. EVEROLIMUS [Suspect]
     Active Substance: EVEROLIMUS
     Indication: INVASIVE DUCTAL BREAST CARCINOMA
     Dosage: 5 MG, QD
     Route: 048
     Dates: start: 20120825, end: 20120830
  9. EVEROLIMUS [Suspect]
     Active Substance: EVEROLIMUS
     Dosage: 10 MG, QD
     Route: 048
     Dates: start: 20120831, end: 20121003

REACTIONS (10)
  - Nausea [Unknown]
  - Leukopenia [Unknown]
  - Hypokalaemia [Unknown]
  - Decreased appetite [Unknown]
  - Hypocalcaemia [Unknown]
  - Stomatitis [Recovering/Resolving]
  - Palpitations [Unknown]
  - Fatigue [Unknown]
  - Hepatotoxicity [Recovered/Resolved]
  - Thrombocytopenia [Recovered/Resolved]
